FAERS Safety Report 18159236 (Version 2)
Quarter: 2020Q3

REPORT INFORMATION
  Report Type: Report from Study
  Country: BR (occurrence: BR)
  Receive Date: 20200817
  Receipt Date: 20200818
  Transmission Date: 20201103
  Serious: Yes (Other)
  Sender: FDA-Public Use
  Company Number: BR-JNJFOC-20200813995

PATIENT
  Sex: Male

DRUGS (3)
  1. METOTREXATE [Concomitant]
     Active Substance: METHOTREXATE SODIUM
  2. FOLIC ACID. [Concomitant]
     Active Substance: FOLIC ACID
  3. STELARA [Suspect]
     Active Substance: USTEKINUMAB
     Indication: PSORIATIC ARTHROPATHY
     Route: 058
     Dates: start: 20180102, end: 201912

REACTIONS (2)
  - Pilonidal cyst [Unknown]
  - Psoriatic arthropathy [Unknown]

NARRATIVE: CASE EVENT DATE: 2019
